FAERS Safety Report 16077768 (Version 3)
Quarter: 2019Q2

REPORT INFORMATION
  Report Type: Report from Study
  Country: US (occurrence: US)
  Receive Date: 20190315
  Receipt Date: 20190502
  Transmission Date: 20190711
  Serious: Yes (Other)
  Sender: FDA-Public Use
  Company Number: US-JNJFOC-20190316373

PATIENT
  Age: 71 Year
  Sex: Female

DRUGS (24)
  1. IMBRUVICA [Suspect]
     Active Substance: IBRUTINIB
     Indication: HYPOGAMMAGLOBULINAEMIA
     Route: 048
     Dates: start: 20181103, end: 20181207
  2. IMBRUVICA [Suspect]
     Active Substance: IBRUTINIB
     Indication: HYPOGAMMAGLOBULINAEMIA
     Route: 048
     Dates: start: 20181208
  3. SIMVASTATIN. [Concomitant]
     Active Substance: SIMVASTATIN
  4. ONDANSETRON [Concomitant]
     Active Substance: ONDANSETRON
  5. BENADRYL [Concomitant]
     Active Substance: DIPHENHYDRAMINE HYDROCHLORIDE
  6. ACETAMIN [Concomitant]
     Active Substance: ACETAMINOPHEN
  7. IMBRUVICA [Suspect]
     Active Substance: IBRUTINIB
     Indication: HYPOGAMMAGLOBULINAEMIA
     Route: 048
     Dates: start: 20181112, end: 20181207
  8. EPINEPHRINE. [Concomitant]
     Active Substance: EPINEPHRINE
  9. POTASSIUM CHLORIDE. [Concomitant]
     Active Substance: POTASSIUM CHLORIDE
  10. OMEPRAZOLE. [Concomitant]
     Active Substance: OMEPRAZOLE
  11. EMLA [Concomitant]
     Active Substance: LIDOCAINE\PRILOCAINE
  12. LATANOPROST. [Concomitant]
     Active Substance: LATANOPROST
  13. ACYCLOVIR. [Concomitant]
     Active Substance: ACYCLOVIR
  14. PROCHLORPERAZINE. [Concomitant]
     Active Substance: PROCHLORPERAZINE
  15. IMBRUVICA [Suspect]
     Active Substance: IBRUTINIB
     Indication: LYMPHOCYTIC LEUKAEMIA
     Route: 048
     Dates: start: 20181208
  16. BACTRIM [Concomitant]
     Active Substance: SULFAMETHOXAZOLE\TRIMETHOPRIM
  17. LEVOTHYROXINE SODIUM. [Concomitant]
     Active Substance: LEVOTHYROXINE SODIUM
  18. HYDROCHLOROTH [Concomitant]
     Active Substance: HYDROCHLOROTHIAZIDE
  19. ALENDRONATE [Concomitant]
     Active Substance: ALENDRONATE SODIUM
  20. IMBRUVICA [Suspect]
     Active Substance: IBRUTINIB
     Indication: LYMPHOCYTIC LEUKAEMIA
     Route: 048
     Dates: start: 20181103, end: 20181207
  21. IMBRUVICA [Suspect]
     Active Substance: IBRUTINIB
     Indication: LYMPHOCYTIC LEUKAEMIA
     Route: 048
     Dates: start: 20181112, end: 20181207
  22. FLUTICASONE PROPIONATE. [Concomitant]
     Active Substance: FLUTICASONE PROPIONATE
  23. SODIUM CHLORIDE. [Concomitant]
     Active Substance: SODIUM CHLORIDE
  24. LIDODERM [Concomitant]
     Active Substance: LIDOCAINE

REACTIONS (3)
  - Upper respiratory tract infection [Unknown]
  - Pleurisy [Unknown]
  - Respiratory tract congestion [Unknown]

NARRATIVE: CASE EVENT DATE: 201902
